FAERS Safety Report 11712518 (Version 1)
Quarter: 2015Q4

REPORT INFORMATION
  Report Type: Spontaneous
  Country: US (occurrence: US)
  Receive Date: 20151104
  Receipt Date: 20151104
  Transmission Date: 20160304
  Serious: No
  Sender: FDA-Public Use
  Company Number: US-ELI_LILLY_AND_COMPANY-US201107005714

PATIENT
  Age: 80 Year
  Sex: Female

DRUGS (1)
  1. FORTEO [Suspect]
     Active Substance: TERIPARATIDE
     Indication: OSTEOPOROSIS
     Dosage: 20 UG, QD
     Route: 065
     Dates: start: 201105

REACTIONS (15)
  - Erythema [Unknown]
  - Sleep disorder [Not Recovered/Not Resolved]
  - Abdominal distension [Unknown]
  - Dyspepsia [Unknown]
  - Flatulence [Unknown]
  - Macule [Unknown]
  - Induration [Recovering/Resolving]
  - Decreased appetite [Unknown]
  - Incorrect product storage [Unknown]
  - Rash [Unknown]
  - Movement disorder [Not Recovered/Not Resolved]
  - Pain [Recovering/Resolving]
  - Nausea [Unknown]
  - Herpes zoster [Unknown]
  - Rash pruritic [Unknown]

NARRATIVE: CASE EVENT DATE: 201107
